FAERS Safety Report 14929553 (Version 2)
Quarter: 2018Q2

REPORT INFORMATION
  Report Type: Spontaneous
  Country: ES (occurrence: ES)
  Receive Date: 20180523
  Receipt Date: 20180529
  Transmission Date: 20180711
  Serious: Yes (Hospitalization, Disabling, Other)
  Sender: FDA-Public Use
  Company Number: ES-MYLANLABS-2018M1033039

PATIENT
  Age: 56 Year
  Sex: Male

DRUGS (1)
  1. SILDENAFIL. [Suspect]
     Active Substance: SILDENAFIL
     Indication: PRODUCT USED FOR UNKNOWN INDICATION
     Route: 065

REACTIONS (4)
  - Spinal cord ischaemia [Not Recovered/Not Resolved]
  - Spinal cord infarction [Recovered/Resolved]
  - Prescription drug used without a prescription [Recovered/Resolved]
  - Spinal cord disorder [Not Recovered/Not Resolved]
